FAERS Safety Report 9171491 (Version 1)
Quarter: 2013Q1

REPORT INFORMATION
  Report Type: Spontaneous
  Country: US (occurrence: None)
  Receive Date: 20130304
  Receipt Date: 20130304
  Transmission Date: 20140127
  Serious: Yes (Other)
  Sender: FDA-Public Use
  Company Number: 2013034864

PATIENT
  Age: 34 Year
  Sex: Female

DRUGS (2)
  1. IVIG [Suspect]
     Indication: THROMBOCYTOPENIA
     Dosage: (BEGINNING AT 20 WEEKS GESTATION 2 G/KG)
  2. IVIG [Suspect]
     Indication: THROMBOCYTOPENIA NEONATAL
     Dosage: (BEGINNING AT 20 WEEKS GESTATION 2 G/KG)

REACTIONS (2)
  - Haemolytic anaemia [None]
  - Maternal exposure during pregnancy [None]
